FAERS Safety Report 15706421 (Version 2)
Quarter: 2019Q1

REPORT INFORMATION
  Report Type: Spontaneous
  Country: IT (occurrence: IT)
  Receive Date: 20181210
  Receipt Date: 20190115
  Transmission Date: 20190417
  Serious: Yes (Other)
  Sender: FDA-Public Use
  Company Number: IT-RARE DISEASE THERAPEUTICS, INC.-2059936

PATIENT
  Age: 42 Year
  Sex: Male

DRUGS (10)
  1. METHOTREXATE. [Suspect]
     Active Substance: METHOTREXATE
     Route: 048
     Dates: start: 201503
  2. VINCRISTINE [Suspect]
     Active Substance: VINCRISTINE
     Route: 065
     Dates: start: 201402
  3. ASPARAGINASE [Suspect]
     Active Substance: ASPARAGINASE
     Route: 065
     Dates: start: 201402
  4. METHOTREXATE. [Suspect]
     Active Substance: METHOTREXATE
     Route: 037
  5. ADRIAMYCIN [Suspect]
     Active Substance: DOXORUBICIN HYDROCHLORIDE
     Route: 065
     Dates: start: 201402
  6. PURIXAN [Suspect]
     Active Substance: MERCAPTOPURINE
     Indication: B-CELL TYPE ACUTE LEUKAEMIA
     Route: 048
     Dates: start: 201503
  7. DAUNORUBICIN [Suspect]
     Active Substance: DAUNORUBICIN
     Route: 065
     Dates: start: 201402
  8. METHOTREXATE. [Suspect]
     Active Substance: METHOTREXATE
     Route: 065
     Dates: start: 201402
  9. CYCLOPHOSPHAMIDE. [Suspect]
     Active Substance: CYCLOPHOSPHAMIDE
     Route: 065
     Dates: start: 201402
  10. CYTARABINE. [Suspect]
     Active Substance: CYTARABINE
     Route: 065
     Dates: start: 201402

REACTIONS (2)
  - Neutropenia [Unknown]
  - Thrombocytopenia [Unknown]
